FAERS Safety Report 8765568 (Version 2)
Quarter: 2013Q1

REPORT INFORMATION
  Report Type: Report from Study
  Country: JP (occurrence: JP)
  Receive Date: 20120903
  Receipt Date: 20130208
  Transmission Date: 20140127
  Serious: Yes (Life-Threatening, Other)
  Sender: FDA-Public Use
  Company Number: PHHY2012JP075702

PATIENT
  Age: 23 Year
  Sex: Female
  Weight: 73 kg

DRUGS (43)
  1. LEPONEX / CLOZARIL [Suspect]
     Indication: SCHIZOPHRENIA, PARANOID TYPE
     Dosage: 12.5 MG, DAILY
     Route: 048
     Dates: start: 20120302, end: 20120302
  2. LEPONEX / CLOZARIL [Suspect]
     Dosage: 25 MG, DAILY
     Route: 048
     Dates: start: 20120303, end: 20120305
  3. LEPONEX / CLOZARIL [Suspect]
     Dosage: 50 MG, DAILY
     Route: 048
     Dates: start: 20120306, end: 20120315
  4. LEPONEX / CLOZARIL [Suspect]
     Dosage: 75 MG, DAILY
     Route: 048
     Dates: start: 20120316, end: 20120322
  5. LEPONEX / CLOZARIL [Suspect]
     Dosage: 100 MG, DAILY
     Route: 048
     Dates: start: 20120323, end: 20120326
  6. LEPONEX / CLOZARIL [Suspect]
     Dosage: 125 MG, DAILY
     Route: 048
     Dates: start: 20120327, end: 20120329
  7. LEPONEX / CLOZARIL [Suspect]
     Dosage: 150 MG, DAILY
     Route: 048
     Dates: start: 20120330, end: 20120402
  8. LEPONEX / CLOZARIL [Suspect]
     Dosage: 175 MG, DAILY
     Route: 048
     Dates: start: 20120403, end: 20120405
  9. LEPONEX / CLOZARIL [Suspect]
     Dosage: 200 MG, DAILY
     Route: 048
     Dates: start: 20120406, end: 20120409
  10. LEPONEX / CLOZARIL [Suspect]
     Dosage: 225 MG, DAILY
     Route: 048
     Dates: start: 20120410, end: 20120412
  11. LEPONEX / CLOZARIL [Suspect]
     Dosage: 250 MG, DAILY
     Route: 048
     Dates: start: 20120413, end: 20120419
  12. LEPONEX / CLOZARIL [Suspect]
     Dosage: 275 MG, DAILY
     Route: 048
     Dates: start: 20120420, end: 20120423
  13. LEPONEX / CLOZARIL [Suspect]
     Dosage: 300 MG, DAILY
     Route: 048
     Dates: start: 20120424, end: 20120426
  14. LEPONEX / CLOZARIL [Suspect]
     Dosage: 325 MG, DAILY
     Route: 048
     Dates: start: 20120427, end: 20120502
  15. LEPONEX / CLOZARIL [Suspect]
     Dosage: 275 MG, DAILY
     Route: 048
     Dates: start: 20120503, end: 20120507
  16. LEPONEX / CLOZARIL [Suspect]
     Dosage: 225 MG, DAILY
     Route: 048
     Dates: start: 20120508, end: 20120509
  17. LEPONEX / CLOZARIL [Suspect]
     Dosage: 200 MG, DAILY
     Route: 048
     Dates: start: 20120510, end: 20120523
  18. LEPONEX / CLOZARIL [Suspect]
     Dosage: 150 MG, DAILY
     Route: 048
     Dates: start: 20120524, end: 20120528
  19. LEPONEX / CLOZARIL [Suspect]
     Dosage: 100 MG, DAILY
     Route: 048
     Dates: start: 20120529, end: 20120530
  20. LEPONEX / CLOZARIL [Suspect]
     Dosage: 75 MG, DAILY
     Route: 048
     Dates: start: 20120531, end: 20120604
  21. LEPONEX / CLOZARIL [Suspect]
     Dosage: 50 MG, DAILY
     Route: 048
     Dates: start: 20120605, end: 20120606
  22. LULLAN [Suspect]
     Indication: SCHIZOPHRENIA, PARANOID TYPE
     Dosage: 40 MG, DAILY
     Route: 048
     Dates: start: 20120702
  23. PROPERICIAZINE [Concomitant]
     Dosage: 60 MG, UNK
     Route: 048
     Dates: start: 20120302
  24. PROPERICIAZINE [Concomitant]
     Dosage: 50 MG, UNK
     Route: 048
  25. PROPERICIAZINE [Concomitant]
     Dosage: 45 MG, UNK
     Route: 048
  26. PROPERICIAZINE [Concomitant]
     Dosage: 40 MG, UNK
     Route: 048
  27. PROPERICIAZINE [Concomitant]
     Dosage: 30 MG, UNK
     Route: 048
  28. PROPERICIAZINE [Concomitant]
     Dosage: 20 MG, UNK
     Route: 048
  29. PROPERICIAZINE [Concomitant]
     Dosage: 10 MG, UNK
     Route: 048
  30. PROPERICIAZINE [Concomitant]
     Dosage: 5 MG, UNK
     Route: 048
     Dates: end: 20120429
  31. PEROSPIRONE HYDROCHLORIDE [Concomitant]
     Dosage: 8 MG, UNK
     Route: 048
     Dates: start: 20120524
  32. PEROSPIRONE HYDROCHLORIDE [Concomitant]
     Dosage: 16 MG, UNK
     Route: 048
  33. PEROSPIRONE HYDROCHLORIDE [Concomitant]
     Dosage: 24 MG, UNK
     Route: 048
  34. PEROSPIRONE HYDROCHLORIDE [Concomitant]
     Dosage: 32 MG, UNK
     Route: 048
     Dates: end: 20120606
  35. LEVOMEPROMAZINE HYDROCHLORIDE [Concomitant]
     Dosage: 50 MG, UNK
     Route: 048
     Dates: start: 20120526
  36. SENNARIDE [Concomitant]
     Indication: SCHIZOPHRENIA, PARANOID TYPE
     Dosage: 24 MG, UNK
     Route: 048
     Dates: start: 20111202
  37. SENNARIDE [Concomitant]
     Dosage: 24 MG, UNK
     Route: 048
  38. MEILAX [Concomitant]
     Indication: SCHIZOPHRENIA, PARANOID TYPE
     Dosage: 2 MG, UNK
     Route: 048
     Dates: start: 20100218
  39. EURODIN [Concomitant]
     Indication: SCHIZOPHRENIA, PARANOID TYPE
     Dosage: 2 MG, UNK
     Route: 048
     Dates: start: 20111021, end: 20120712
  40. MAGNESIUM OXIDE [Concomitant]
     Indication: SCHIZOPHRENIA, PARANOID TYPE
     Dosage: 3000 MG, UNK
     Route: 048
     Dates: start: 20110701
  41. MAGNESIUM OXIDE [Concomitant]
     Dosage: 500 MG, UNK
     Route: 048
  42. DAI KENCHU TO [Concomitant]
     Indication: SCHIZOPHRENIA, PARANOID TYPE
     Dosage: 7500 MG, UNK
     Route: 048
     Dates: start: 20120502
  43. DAI KENCHU TO [Concomitant]
     Dosage: 7500 MG, UNK
     Route: 048

REACTIONS (11)
  - Suicide attempt [Recovering/Resolving]
  - Intentional self-injury [Recovered/Resolved]
  - Impulsive behaviour [Unknown]
  - Blood creatine phosphokinase increased [Unknown]
  - Self-induced vomiting [Recovering/Resolving]
  - Weight decreased [Not Recovered/Not Resolved]
  - Sedation [Recovering/Resolving]
  - Extrapyramidal disorder [Recovering/Resolving]
  - Electroencephalogram abnormal [Recovering/Resolving]
  - Erythropenia [Recovered/Resolved]
  - Anaemia [Recovered/Resolved]
